FAERS Safety Report 6197016-4 (Version None)
Quarter: 2009Q2

REPORT INFORMATION
  Report Type: 
  Country: None (occurrence: None)
  Receive Date: 20090520
  Receipt Date: 20090514
  Transmission Date: 20091009
  Serious: Yes (Other)
  Sender: FDA-Public Use
  Company Number: US-B.I. PHARMACEUTICALS,INC./RIDGEFIELD-2009-BP-05200BP

PATIENT
  Age: 74 Year
  Sex: Male
  Weight: 91.2 kg

DRUGS (7)
  1. MICARDIS [Suspect]
     Indication: HYPERTENSION
     Dosage: 40MG
     Dates: end: 20090404
  2. MICARDIS [Suspect]
     Indication: DIABETIC NEPHROPATHY
  3. MOBIC [Concomitant]
  4. VYTORIN [Concomitant]
  5. REQUIP [Concomitant]
     Dosage: 1MG
  6. SOLMOR [Concomitant]
  7. FLOMAX [Concomitant]

REACTIONS (1)
  - HYPERKALAEMIA [None]
